FAERS Safety Report 24580400 (Version 2)
Quarter: 2025Q1

REPORT INFORMATION
  Report Type: Spontaneous
  Country: US (occurrence: US)
  Receive Date: 20241105
  Receipt Date: 20250204
  Transmission Date: 20250408
  Serious: Yes (Other)
  Sender: PFIZER
  Company Number: US-PFIZER INC-202400291184

PATIENT
  Age: 81 Year
  Sex: Male
  Weight: 75.75 kg

DRUGS (2)
  1. VYNDAMAX [Suspect]
     Active Substance: TAFAMIDIS
     Indication: Atrial fibrillation
  2. VYNDAMAX [Suspect]
     Active Substance: TAFAMIDIS
     Dosage: 61MG, 1 DAILY
     Dates: start: 2024

REACTIONS (5)
  - Dementia [Unknown]
  - Cardiac failure congestive [Unknown]
  - Malaise [Unknown]
  - Anxiety [Unknown]
  - Renal disorder [Unknown]
